FAERS Safety Report 9366638 (Version 1)
Quarter: 2013Q2

REPORT INFORMATION
  Report Type: Spontaneous
  Country: US (occurrence: US)
  Receive Date: 20130625
  Receipt Date: 20130625
  Transmission Date: 20140414
  Serious: No
  Sender: FDA-Public Use
  Company Number: US-009507513-1306USA008640

PATIENT
  Age: 61 Year
  Sex: Female

DRUGS (1)
  1. CLARINEX-D-12 [Suspect]
     Indication: SEASONAL ALLERGY
     Dosage: 2.5 MG, UNK
     Route: 048

REACTIONS (7)
  - Lacrimation increased [Unknown]
  - Hypersensitivity [Unknown]
  - Cough [Unknown]
  - Rhinorrhoea [Unknown]
  - Throat irritation [Unknown]
  - Headache [Unknown]
  - Drug dose omission [Unknown]
